FAERS Safety Report 5419411-0 (Version None)
Quarter: 2007Q3

REPORT INFORMATION
  Report Type: 
  Country: None (occurrence: None)
  Receive Date: 20070820
  Receipt Date: 20070815
  Transmission Date: 20080115
  Serious: Yes (Other)
  Sender: FDA-Public Use
  Company Number: A0671231A

PATIENT
  Age: 37 Year
  Sex: Female

DRUGS (4)
  1. WELLBUTRIN [Suspect]
     Indication: DRUG USE FOR UNKNOWN INDICATION
     Dosage: 150MG TWICE PER DAY
     Route: 048
  2. CIPRALEX [Concomitant]
  3. IMOVANE [Concomitant]
  4. MICRONOR [Concomitant]

REACTIONS (4)
  - EYE IRRITATION [None]
  - PARAESTHESIA [None]
  - THROAT IRRITATION [None]
  - URTICARIA [None]
